FAERS Safety Report 5427737-X (Version None)
Quarter: 2007Q3

REPORT INFORMATION
  Report Type: 
  Country: None (occurrence: None)
  Receive Date: 20070823
  Receipt Date: 20070815
  Transmission Date: 20080115
  Serious: Yes (Hospitalization)
  Sender: FDA-Public Use
  Company Number: S07-USA-03528-01

PATIENT
  Age: 62 Year
  Sex: Female
  Weight: 112.4921 kg

DRUGS (12)
  1. THYROID TAB [Suspect]
     Indication: HYPOTHYROIDISM
     Dosage: 90 MG QD PO
     Route: 048
     Dates: start: 20070702, end: 20070811
  2. THYROID TAB [Suspect]
     Indication: HYPOTHYROIDISM
     Dosage: 60 MG QD PO
     Route: 048
     Dates: start: 20070401, end: 20070701
  3. AMBIEN CR [Concomitant]
  4. KLONOPIN [Concomitant]
  5. CARDIZEM CD [Concomitant]
  6. NEXIUM [Concomitant]
  7. SINGULAIR [Concomitant]
  8. SEROQUEL [Concomitant]
  9. ALBUTEROL [Concomitant]
  10. COLACE (DOCUSATE SODIUM) [Concomitant]
  11. NEURONTIN [Concomitant]
  12. NITROGLYCERIN [Concomitant]

REACTIONS (2)
  - ANGINA PECTORIS [None]
  - HYPERTHYROIDISM [None]
